FAERS Safety Report 10051069 (Version 1)
Quarter: 2014Q2

REPORT INFORMATION
  Report Type: Spontaneous
  Country: BR (occurrence: BR)
  Receive Date: 20140401
  Receipt Date: 20140401
  Transmission Date: 20141212
  Serious: Yes (Other)
  Sender: FDA-Public Use
  Company Number: PHHY2014BR038308

PATIENT
  Age: 74 Year
  Sex: Male
  Weight: 65 kg

DRUGS (6)
  1. MIRTAZAPINE SANDOZ [Suspect]
     Indication: DEPRESSION
     Dosage: 30 MG, QD
     Route: 048
  2. MIRTAZAPINE SANDOZ [Suspect]
     Dosage: 15 MG, QD
     Route: 048
     Dates: end: 20140320
  3. PURAN T4 [Concomitant]
     Indication: HYPOTHYROIDISM
     Dosage: 100 UG, QD
  4. SOMALGIN [Concomitant]
     Dosage: 100 MG, QD
  5. ATACAND [Concomitant]
     Indication: HYPERTENSION
  6. SELOZOK [Concomitant]
     Indication: HYPERTENSION
     Dosage: 50 MG, QD

REACTIONS (2)
  - Somnolence [Recovered/Resolved]
  - Incorrect dose administered [Unknown]
